FAERS Safety Report 8184290-8 (Version None)
Quarter: 2012Q1

REPORT INFORMATION
  Report Type: 
  Country: None (occurrence: None)
  Receive Date: 20120305
  Receipt Date: 20120225
  Transmission Date: 20120608
  Serious: Yes (Other)
  Sender: FDA-Public Use
  Company Number: US-BRISTOL-MYERS SQUIBB COMPANY-16424962

PATIENT
  Sex: Female

DRUGS (2)
  1. ORENCIA [Suspect]
     Dosage: STARTED SIX MONTH AGO, LAST INF:13FEB2012
  2. LEFLUNOMIDE [Suspect]
     Dates: end: 20120210

REACTIONS (2)
  - NEPHROPATHY [None]
  - ALOPECIA [None]
